FAERS Safety Report 8495051-4 (Version None)
Quarter: 2012Q3

REPORT INFORMATION
  Report Type: 
  Country: None (occurrence: None)
  Receive Date: 20120709
  Receipt Date: 20120705
  Transmission Date: 20120928
  Serious: Yes (Death)
  Sender: FDA-Public Use
  Company Number: GXKR2012DE002152

PATIENT

DRUGS (1)
  1. METHYLPHENIDATE [Suspect]
     Route: 065

REACTIONS (1)
  - DEATH [None]
